FAERS Safety Report 7502016-5 (Version None)
Quarter: 2011Q2

REPORT INFORMATION
  Report Type: 
  Country: None (occurrence: None)
  Receive Date: 20110523
  Receipt Date: 20110523
  Transmission Date: 20111010
  Serious: Yes (Disabling)
  Sender: FDA-Public Use
  Company Number: None

PATIENT
  Age: 61 Year
  Sex: Female
  Weight: 80.2867 kg

DRUGS (1)
  1. REGLAN [Suspect]

REACTIONS (1)
  - TARDIVE DYSKINESIA [None]
